FAERS Safety Report 8552733-3 (Version None)
Quarter: 2012Q3

REPORT INFORMATION
  Report Type: 
  Country: None (occurrence: None)
  Receive Date: 20120731
  Receipt Date: 20120723
  Transmission Date: 20120928
  Serious: Yes (Hospitalization)
  Sender: FDA-Public Use
  Company Number: PHHY2012FR064315

PATIENT
  Age: 40 Year
  Sex: Female

DRUGS (6)
  1. CERTICAN [Suspect]
     Dates: start: 20110101, end: 20120307
  2. RED BLOOD CELLS [Concomitant]
     Dosage: 6 UNITS
     Dates: start: 20120307
  3. TACROLIMUS [Suspect]
     Dosage: 5 MG, QD
     Route: 048
  4. TACROLIMUS [Suspect]
     Dosage: 4 MG, QD
  5. RED BLOOD CELLS [Concomitant]
     Dosage: 5 UNITS
     Dates: start: 20120306
  6. VITAMIN D [Concomitant]
     Dosage: ONCE EVERY THREE MONTH

REACTIONS (18)
  - DEHYDRATION [None]
  - HYPOCHROMIC ANAEMIA [None]
  - GENERAL PHYSICAL HEALTH DETERIORATION [None]
  - RENAL TUBULAR NECROSIS [None]
  - KIDNEY FIBROSIS [None]
  - ACUTE PRERENAL FAILURE [None]
  - BLOOD UREA INCREASED [None]
  - HAEMOLYTIC ANAEMIA [None]
  - BLOOD LACTATE DEHYDROGENASE INCREASED [None]
  - TOXICITY TO VARIOUS AGENTS [None]
  - THROMBOTIC MICROANGIOPATHY [None]
  - BLOOD CREATININE INCREASED [None]
  - DIARRHOEA [None]
  - ASTHENIA [None]
  - THROMBOCYTOPENIA [None]
  - WEIGHT DECREASED [None]
  - HAEMOLYTIC URAEMIC SYNDROME [None]
  - LYMPHOCYTIC INFILTRATION [None]
